FAERS Safety Report 5477922-6 (Version None)
Quarter: 2007Q4

REPORT INFORMATION
  Report Type: 
  Country: None (occurrence: None)
  Receive Date: 20071005
  Receipt Date: 20070926
  Transmission Date: 20080405
  Serious: Yes (Hospitalization)
  Sender: FDA-Public Use
  Company Number: PHBS2007JP16102

PATIENT
  Sex: Male

DRUGS (1)
  1. VOLTAREN [Suspect]
     Route: 054
     Dates: start: 20070401

REACTIONS (6)
  - ADRENAL INSUFFICIENCY [None]
  - DEHYDRATION [None]
  - ENTERITIS INFECTIOUS [None]
  - RENAL FAILURE ACUTE [None]
  - SEPSIS [None]
  - SHOCK [None]
